FAERS Safety Report 18426451 (Version 1)
Quarter: 2020Q4

REPORT INFORMATION
  Report Type: Spontaneous
  Country: US (occurrence: US)
  Receive Date: 20201026
  Receipt Date: 20201026
  Transmission Date: 20210114
  Serious: Yes (Death, Life-Threatening, Hospitalization, Other)
  Sender: FDA-Public Use
  Company Number: US-MACLEODS PHARMACEUTICALS US LTD-MAC2020028687

PATIENT

DRUGS (2)
  1. METFORMIN [Suspect]
     Active Substance: METFORMIN HYDROCHLORIDE
     Indication: PRODUCT USED FOR UNKNOWN INDICATION
     Dosage: INGESTED 64 AND 85 GRAMS, SINGLE
     Route: 065
  2. ALCOHOL. [Suspect]
     Active Substance: ALCOHOL
     Indication: PRODUCT USED FOR UNKNOWN INDICATION
     Dosage: UNK
     Route: 065

REACTIONS (21)
  - Sinus tachycardia [Unknown]
  - Agitation [Unknown]
  - Left ventricular dysfunction [Unknown]
  - Metabolic acidosis [Unknown]
  - Unresponsive to stimuli [Unknown]
  - Ventricular tachycardia [Unknown]
  - Pulseless electrical activity [Unknown]
  - Toxicity to various agents [Unknown]
  - Cardiac arrest [Unknown]
  - Alcohol poisoning [Unknown]
  - Aggression [Recovered/Resolved]
  - Coagulopathy [Unknown]
  - Confusional state [Unknown]
  - Intentional overdose [Fatal]
  - Hyperglycaemia [Unknown]
  - Lactic acidosis [Fatal]
  - Pancreatitis [Unknown]
  - Completed suicide [Fatal]
  - Osmolar gap increased [Unknown]
  - Anal incontinence [Unknown]
  - Acute kidney injury [Unknown]
